FAERS Safety Report 8780099 (Version 1)
Quarter: 2012Q4

REPORT INFORMATION
  Report Type: Spontaneous
  Country: US (occurrence: None)
  Receive Date: 20120904
  Receipt Date: 20120904
  Transmission Date: 20130627
  Serious: Yes (Hospitalization)
  Sender: FDA-Public Use
  Company Number: None

PATIENT
  Age: 62 Year
  Sex: Female
  Weight: 46.27 kg

DRUGS (2)
  1. OXALIPLATIN [Suspect]
     Indication: ESOPHAGEAL CANCER
     Route: 042
  2. AVASTIN [Suspect]
     Route: 042

REACTIONS (3)
  - Diarrhoea [None]
  - Dehydration [None]
  - Hypotension [None]
